FAERS Safety Report 11300973 (Version 1)
Quarter: 2015Q3

REPORT INFORMATION
  Report Type: Spontaneous
  Country: US (occurrence: US)
  Receive Date: 20150722
  Receipt Date: 20150722
  Transmission Date: 20151125
  Serious: Yes (Other)
  Sender: FDA-Public Use
  Company Number: US-ELI_LILLY_AND_COMPANY-US201203006009

PATIENT
  Age: 66 Year
  Sex: Male

DRUGS (2)
  1. EFFIENT [Suspect]
     Active Substance: PRASUGREL HYDROCHLORIDE
     Indication: STENT PLACEMENT
     Dosage: 10 MG, UNK
     Route: 048
     Dates: start: 201202
  2. ASA [Concomitant]
     Active Substance: ASPIRIN
     Indication: ACUTE CORONARY SYNDROME
     Dosage: 81 MG, UNK
     Route: 048
     Dates: start: 2011

REACTIONS (1)
  - Puncture site haemorrhage [Recovered/Resolved]

NARRATIVE: CASE EVENT DATE: 201203
